FAERS Safety Report 10855240 (Version 1)
Quarter: 2015Q1

REPORT INFORMATION
  Report Type: Spontaneous
  Country: US (occurrence: None)
  Receive Date: 20150218
  Receipt Date: 20150218
  Transmission Date: 20150721
  Serious: No
  Sender: FDA-Public Use
  Company Number: None

PATIENT
  Age: 47 Year
  Sex: Female
  Weight: 58.06 kg

DRUGS (2)
  1. DIFLUCAN [Suspect]
     Active Substance: FLUCONAZOLE
     Indication: VULVOVAGINAL MYCOTIC INFECTION
     Dosage: 1 PILL 1 REFILL X2, 1 AND EVERY 3 DAYS
     Route: 048
     Dates: start: 20150207, end: 20150213
  2. DIFLUCAN [Suspect]
     Active Substance: FLUCONAZOLE
     Indication: ANTIBIOTIC THERAPY
     Dosage: 1 PILL 1 REFILL X2, 1 AND EVERY 3 DAYS
     Route: 048
     Dates: start: 20150207, end: 20150213

REACTIONS (8)
  - Tachycardia [None]
  - Headache [None]
  - Faecal incontinence [None]
  - Diarrhoea [None]
  - Nausea [None]
  - Hypertension [None]
  - Postural orthostatic tachycardia syndrome [None]
  - Gastrointestinal pain [None]

NARRATIVE: CASE EVENT DATE: 20150212
